FAERS Safety Report 7501939-0 (Version None)
Quarter: 2011Q2

REPORT INFORMATION
  Report Type: 
  Country: None (occurrence: None)
  Receive Date: 20110525
  Receipt Date: 20110520
  Transmission Date: 20111010
  Serious: No
  Sender: FDA-Public Use
  Company Number: US-PFIZER INC-2011110359

PATIENT
  Sex: Female

DRUGS (2)
  1. OXYCODONE HCL AND ACETAMINOPHEN [Concomitant]
     Indication: PAIN
     Dosage: UNK
  2. LYRICA [Suspect]
     Indication: FIBROMYALGIA
     Dosage: UNK
     Dates: start: 20110519

REACTIONS (2)
  - DYSPNOEA [None]
  - OROPHARYNGEAL PAIN [None]
